FAERS Safety Report 4496580-0 (Version None)
Quarter: 2004Q4

REPORT INFORMATION
  Report Type: 
  Country: None (occurrence: None)
  Receive Date: 20041109
  Receipt Date: 20041103
  Transmission Date: 20050328
  Serious: Yes (Other)
  Sender: FDA-Public Use
  Company Number: 200413295EU

PATIENT
  Age: 29 Year
  Sex: Female

DRUGS (4)
  1. ARAVA [Suspect]
     Indication: JUVENILE ARTHRITIS
     Route: 048
     Dates: start: 20040401, end: 20040701
  2. HERACILLIN [Concomitant]
  3. PREDNISOLON PFIZER [Concomitant]
  4. NAPROSYN [Concomitant]

REACTIONS (3)
  - ALANINE AMINOTRANSFERASE INCREASED [None]
  - NECROSIS [None]
  - VASCULITIS [None]
